FAERS Safety Report 6510155-0 (Version None)
Quarter: 2009Q4

REPORT INFORMATION
  Report Type: 
  Country: None (occurrence: None)
  Receive Date: 20091221
  Receipt Date: 20091221
  Transmission Date: 20100525
  Serious: No
  Sender: FDA-Public Use
  Company Number: None

PATIENT
  Sex: Female
  Weight: 55.3388 kg

DRUGS (1)
  1. BUPROPION HYDROCHLORIDE [Suspect]
     Indication: POST-TRAUMATIC STRESS DISORDER
     Dosage: 300 MG ONE TIME, AM PO
     Route: 048
     Dates: start: 20090918, end: 20090923

REACTIONS (2)
  - LETHARGY [None]
  - PRODUCT SUBSTITUTION ISSUE [None]
